FAERS Safety Report 9031554 (Version 1)
Quarter: 2013Q1

REPORT INFORMATION
  Report Type: Spontaneous
  Country: US (occurrence: US)
  Receive Date: 20130124
  Receipt Date: 20130124
  Transmission Date: 20140127
  Serious: No
  Sender: FDA-Public Use
  Company Number: US-PFIZER INC-2013030598

PATIENT
  Age: 59 Year
  Sex: Male
  Weight: 70.3 kg

DRUGS (3)
  1. LYRICA [Suspect]
     Indication: NEURALGIA
     Dosage: 75 MG, 3X/DAY
     Route: 048
     Dates: start: 2012, end: 2012
  2. LYRICA [Suspect]
     Dosage: 75 MG, 2X/DAY
     Route: 048
     Dates: start: 2012
  3. ADVAIR [Concomitant]
     Indication: ASTHMA
     Dosage: UNK, AS NEEDED

REACTIONS (2)
  - Intentional drug misuse [Unknown]
  - Weight fluctuation [Unknown]
